FAERS Safety Report 7406338-8 (Version None)
Quarter: 2011Q2

REPORT INFORMATION
  Report Type: 
  Country: None (occurrence: None)
  Receive Date: 20110411
  Receipt Date: 20110329
  Transmission Date: 20111010
  Serious: Yes (Hospitalization, Other)
  Sender: FDA-Public Use
  Company Number: US-ELI_LILLY_AND_COMPANY-US201104000450

PATIENT
  Sex: Male

DRUGS (1)
  1. FORTEO [Suspect]
     Indication: BONE DISORDER
     Dosage: 20 UG, QD
     Dates: end: 20110325

REACTIONS (2)
  - BRAIN NEOPLASM [None]
  - GENERAL PHYSICAL HEALTH DETERIORATION [None]
